FAERS Safety Report 9022756 (Version 1)
Quarter: 2013Q1

REPORT INFORMATION
  Report Type: Spontaneous
  Country: US (occurrence: US)
  Receive Date: 20130120
  Receipt Date: 20130120
  Transmission Date: 20140127
  Serious: No
  Sender: FDA-Public Use
  Company Number: US-ALLERGAN-1217684US

PATIENT
  Age: 61 Year
  Sex: Female

DRUGS (4)
  1. BOTOX COSMETIC [Suspect]
     Indication: SKIN WRINKLING
     Dosage: 21 UNK, SINGLE
     Route: 030
     Dates: start: 20121105, end: 20121105
  2. BOTOX COSMETIC [Suspect]
     Indication: SKIN WRINKLING
     Dosage: 10 UNITS, SINGLE
     Route: 030
     Dates: start: 20121105, end: 20121105
  3. BOTOX COSMETIC [Suspect]
     Indication: SKIN WRINKLING
     Dosage: 6 UNITS, SINGLE
     Dates: start: 20121105, end: 20121105
  4. BOTOX COSMETIC [Suspect]
     Indication: PRODUCT USED FOR UNKNOWN INDICATION
     Dosage: 6 UNITS, SINGLE
     Route: 030
     Dates: start: 20121105, end: 20121105

REACTIONS (3)
  - Drug administered at inappropriate site [Unknown]
  - Incorrect dose administered [Unknown]
  - Drug ineffective [Unknown]
